FAERS Safety Report 5488621-9 (Version None)
Quarter: 2007Q4

REPORT INFORMATION
  Report Type: 
  Country: None (occurrence: None)
  Receive Date: 20071016
  Receipt Date: 20071003
  Transmission Date: 20080405
  Serious: Yes (Hospitalization)
  Sender: FDA-Public Use
  Company Number: 2007BI019679

PATIENT
  Age: 40 Year
  Sex: Female

DRUGS (3)
  1. NATALIZUMAB [Suspect]
     Indication: MULTIPLE SCLEROSIS
     Dosage: 300 MG;QW;IV
     Route: 042
     Dates: start: 20070425
  2. AVONEX [Concomitant]
  3. STEROIDS [Concomitant]

REACTIONS (4)
  - ASTHMA [None]
  - NAIL OPERATION [None]
  - OPEN WOUND [None]
  - VENOUS REPAIR [None]
